FAERS Safety Report 16395578 (Version 1)
Quarter: 2019Q3

REPORT INFORMATION
  Report Type: Spontaneous
  Country: US (occurrence: US)
  Receive Date: 20190604
  Receipt Date: 20190604
  Transmission Date: 20191004
  Serious: Yes (Other)
  Sender: FDA-Public Use
  Company Number: None

PATIENT
  Age: 21 Year
  Sex: Female
  Weight: 57.61 kg

DRUGS (1)
  1. PARAGARD T 380A [Suspect]
     Active Substance: COPPER

REACTIONS (5)
  - Maternal exposure before pregnancy [None]
  - Emotional disorder [None]
  - Device dislocation [None]
  - Pregnancy with contraceptive device [None]
  - Maternal exposure during pregnancy [None]

NARRATIVE: CASE EVENT DATE: 20180821
